FAERS Safety Report 24910571 (Version 5)
Quarter: 2025Q2

REPORT INFORMATION
  Report Type: Spontaneous
  Country: US (occurrence: US)
  Receive Date: 20250131
  Receipt Date: 20250422
  Transmission Date: 20250717
  Serious: No
  Sender: PFIZER
  Company Number: US-PFIZER INC-202500018425

PATIENT
  Age: 16 Year
  Sex: Male
  Weight: 47.619 kg

DRUGS (2)
  1. GENOTROPIN [Suspect]
     Active Substance: SOMATROPIN
     Indication: Growth hormone deficiency
     Dosage: 1.2 MG, DAILY
     Dates: start: 202410
  2. GENOTROPIN [Suspect]
     Active Substance: SOMATROPIN
     Dosage: TWICE A DAY AS DIRECTED BY THEIR DOCTOR, ONCE IN THE MORNING AND ONCE IN THE EVENING

REACTIONS (2)
  - Drug dose omission by device [Unknown]
  - Device leakage [Unknown]
